FAERS Safety Report 22208783 (Version 1)
Quarter: 2023Q2

REPORT INFORMATION
  Report Type: Spontaneous
  Country: US (occurrence: US)
  Receive Date: 20230413
  Receipt Date: 20230413
  Transmission Date: 20230721
  Serious: Yes (Hospitalization)
  Sender: FDA-Public Use
  Company Number: US-ALLERGAN-2303343US

PATIENT
  Sex: Female
  Weight: 49.895 kg

DRUGS (1)
  1. REFRESH TEARS [Suspect]
     Active Substance: CARBOXYMETHYLCELLULOSE SODIUM
     Indication: Dry eye
     Dosage: 5 GTT, PRN
     Route: 047
     Dates: start: 2019

REACTIONS (7)
  - Fall [Recovered/Resolved]
  - Vitreous floaters [Not Recovered/Not Resolved]
  - Weight decreased [Not Recovered/Not Resolved]
  - Limb asymmetry [Unknown]
  - Unevaluable event [Unknown]
  - Visual impairment [Not Recovered/Not Resolved]
  - Visual impairment [Unknown]

NARRATIVE: CASE EVENT DATE: 20191201
